FAERS Safety Report 4688705-9 (Version None)
Quarter: 2005Q2

REPORT INFORMATION
  Report Type: 
  Country: None (occurrence: None)
  Receive Date: 20050613
  Receipt Date: 20050421
  Transmission Date: 20051028
  Serious: Yes (Hospitalization, Other)
  Sender: FDA-Public Use
  Company Number: BE-BRISTOL-MYERS SQUIBB COMPANY-12942579

PATIENT
  Age: 45 Year
  Sex: Female

DRUGS (5)
  1. AVAPRO [Suspect]
     Indication: HYPERTENSION
     Dosage: 14 TABLETS OF IRBESARTAN 150 MG ON 08-APR-2005; TOTAL DURATION OF IRBESARTAN = 15 DAYS
     Route: 048
     Dates: end: 20050408
  2. TRAMADOL HCL [Suspect]
     Dosage: 60 TABLETS OF TRAMADOL 100 MG
  3. ALCOHOL [Suspect]
  4. ADALAT [Concomitant]
  5. NIFEDIPINE [Concomitant]

REACTIONS (6)
  - BLOOD PRESSURE DECREASED [None]
  - HEPATIC FAILURE [None]
  - INTENTIONAL MISUSE [None]
  - MULTIPLE DRUG OVERDOSE [None]
  - RENAL FAILURE [None]
  - SUICIDE ATTEMPT [None]
